FAERS Safety Report 13097840 (Version 1)
Quarter: 2017Q1

REPORT INFORMATION
  Report Type: Spontaneous
  Country: US (occurrence: US)
  Receive Date: 20170109
  Receipt Date: 20170109
  Transmission Date: 20170428
  Serious: No
  Sender: FDA-Public Use
  Company Number: US-GLAXOSMITHKLINE-US2016193321

PATIENT
  Age: 75 Year
  Sex: Male

DRUGS (1)
  1. EXCEDRIN MIGRAINE [Suspect]
     Active Substance: ACETAMINOPHEN\ASPIRIN\CAFFEINE
     Indication: MIGRAINE
     Dosage: ONE CAPLET AT A TIME
     Dates: start: 20161001, end: 20161229

REACTIONS (3)
  - Insomnia [Unknown]
  - Product label confusion [Unknown]
  - Incorrect dose administered [Unknown]
